FAERS Safety Report 12256852 (Version 1)
Quarter: 2016Q2

REPORT INFORMATION
  Report Type: Spontaneous
  Country: US (occurrence: None)
  Receive Date: 20160411
  Receipt Date: 20160411
  Transmission Date: 20160815
  Serious: No
  Sender: FDA-Public Use
  Company Number: None

PATIENT
  Age: 73 Year
  Sex: Female

DRUGS (1)
  1. PROLIA [Suspect]
     Active Substance: DENOSUMAB
     Indication: OSTEOPOROSIS
     Dosage: 60 MG EVERY 6 MONTHS SUBCUTANEOUSLY
     Route: 058
     Dates: start: 20160407, end: 20160408

REACTIONS (2)
  - Pain in jaw [None]
  - Pain [None]

NARRATIVE: CASE EVENT DATE: 20160407
